FAERS Safety Report 5480615-2 (Version None)
Quarter: 2007Q4

REPORT INFORMATION
  Report Type: 
  Country: None (occurrence: None)
  Receive Date: 20071009
  Receipt Date: 20070928
  Transmission Date: 20080405
  Serious: Yes (Hospitalization)
  Sender: FDA-Public Use
  Company Number: PHHO2007DE16006

PATIENT
  Age: 56 Year
  Sex: Male

DRUGS (1)
  1. CGP 57148B [Suspect]
     Indication: BILE DUCT CANCER
     Dosage: 600 MG, QD
     Route: 048
     Dates: start: 20070820

REACTIONS (2)
  - EPILEPSY [None]
  - PULMONARY EMBOLISM [None]
